FAERS Safety Report 24302226 (Version 1)
Quarter: 2024Q3

REPORT INFORMATION
  Report Type: Spontaneous
  Country: CN (occurrence: CN)
  Receive Date: 20240910
  Receipt Date: 20240910
  Transmission Date: 20241016
  Serious: Yes (Other)
  Sender: NOVARTIS
  Company Number: CN-002147023-NVSC2024CN179394

PATIENT
  Age: 67 Year
  Sex: Female
  Weight: 68 kg

DRUGS (12)
  1. SANDOSTATIN [Suspect]
     Active Substance: OCTREOTIDE ACETATE
     Indication: Symptomatic treatment
     Dosage: 1 MG, QD (PUMP INJECTION) (0.1MG: 1ML/ INJECTION*5 INJECTION/BOX)
     Route: 050
     Dates: start: 20230718, end: 20230723
  2. SANDOSTATIN [Suspect]
     Active Substance: OCTREOTIDE ACETATE
     Indication: Enzyme inhibition
     Dosage: UNK
     Route: 058
     Dates: start: 20230724
  3. SANDOSTATIN [Suspect]
     Active Substance: OCTREOTIDE ACETATE
  4. ENOXAPARIN SODIUM [Suspect]
     Active Substance: ENOXAPARIN SODIUM
     Indication: Anticoagulant therapy
     Dosage: 0.4 ML (1 TIME IN 4 DAYS) (40MG: 0.4ML/ INJECTION)
     Route: 058
     Dates: start: 20230718, end: 20230721
  5. MEROPENEM [Suspect]
     Active Substance: MEROPENEM
     Indication: Infection
     Dosage: 0.5 G, TID
     Route: 041
     Dates: start: 20230718, end: 20230723
  6. METRONIDAZOLE [Suspect]
     Active Substance: METRONIDAZOLE
     Indication: Infection
     Dosage: 250 ML, TID (0.5G/250ML/BOTTLE)
     Route: 041
     Dates: start: 20230718, end: 20230724
  7. AMINO ACIDS [Concomitant]
     Active Substance: AMINO ACIDS
     Indication: Parenteral nutrition
     Dosage: 1 DOSAGE FORM, QD (1 BOTTLE)
     Route: 041
     Dates: start: 20230718, end: 20230720
  8. POTASSIUM CHLORIDE [Concomitant]
     Active Substance: POTASSIUM CHLORIDE
     Indication: Mineral supplementation
     Dosage: 1 G, QD (SUSTAINED RELEASE TABLETS)
     Route: 048
     Dates: start: 20230721, end: 20230728
  9. VITAMIN B12 [Concomitant]
     Active Substance: CYANOCOBALAMIN
     Indication: Parenteral nutrition
     Dosage: 500 UG, QD
     Route: 030
     Dates: start: 20230718, end: 20230721
  10. VITAMIN B1 [Concomitant]
     Active Substance: THIAMINE HYDROCHLORIDE
     Indication: Parenteral nutrition
     Dosage: 0.1 G, QD
     Route: 030
     Dates: start: 20230718, end: 20230721
  11. AMLODIPINE AND VALSARTAN [Concomitant]
     Active Substance: AMLODIPINE\VALSARTAN
     Indication: Hypertension
     Dosage: 1 DOSAGE FORM, QD
     Route: 048
     Dates: start: 20230719, end: 20230724
  12. VALSARTAN [Concomitant]
     Active Substance: VALSARTAN
     Indication: Hypertension
     Dosage: 80 MG, QD
     Route: 048
     Dates: start: 20230718, end: 20230718

REACTIONS (1)
  - Drug-induced liver injury [Recovering/Resolving]

NARRATIVE: CASE EVENT DATE: 20230722
